FAERS Safety Report 20839643 (Version 1)
Quarter: 2022Q2

REPORT INFORMATION
  Report Type: Spontaneous
  Country: US (occurrence: None)
  Receive Date: 20220517
  Receipt Date: 20220517
  Transmission Date: 20220721
  Serious: Yes (Hospitalization)
  Sender: FDA-Public Use
  Company Number: US-ROCHE-3090946

PATIENT
  Sex: Female
  Weight: 81.720 kg

DRUGS (2)
  1. OCREVUS [Suspect]
     Active Substance: OCRELIZUMAB
     Indication: Relapsing multiple sclerosis
     Route: 042
     Dates: start: 202002
  2. ADDERALL [Concomitant]
     Active Substance: AMPHETAMINE ASPARTATE\AMPHETAMINE SULFATE\DEXTROAMPHETAMINE SACCHARATE\DEXTROAMPHETAMINE SULFATE
     Indication: Feeling abnormal

REACTIONS (5)
  - Maternal exposure before pregnancy [Unknown]
  - Premature delivery [Unknown]
  - Premature labour [Unknown]
  - Haemorrhage [Recovered/Resolved]
  - Immunoglobulins decreased [Not Recovered/Not Resolved]
